FAERS Safety Report 14191400 (Version 2)
Quarter: 2017Q4

REPORT INFORMATION
  Report Type: Spontaneous
  Country: US (occurrence: US)
  Receive Date: 20171115
  Receipt Date: 20171221
  Transmission Date: 20180321
  Serious: Yes (Other)
  Sender: FDA-Public Use
  Company Number: US-BAYER-2017-218441

PATIENT
  Age: 60 Year
  Sex: Female

DRUGS (2)
  1. LISINOPRIL. [Concomitant]
     Active Substance: LISINOPRIL
  2. CLIMARA [Suspect]
     Active Substance: ESTRADIOL
     Route: 062

REACTIONS (2)
  - Postmenopausal haemorrhage [Recovered/Resolved]
  - Product quality issue [None]
